FAERS Safety Report 5919495-7 (Version None)
Quarter: 2008Q4

REPORT INFORMATION
  Report Type: 
  Country: None (occurrence: None)
  Receive Date: 20081014
  Receipt Date: 20081014
  Transmission Date: 20090506
  Serious: Yes (Hospitalization)
  Sender: FDA-Public Use
  Company Number: None

PATIENT
  Sex: Female
  Weight: 7.1668 kg

DRUGS (10)
  1. CLINDAMYCIN HCL [Suspect]
  2. CEFOTAXIME SODIUM [Suspect]
  3. ACETAMINOPHEN [Concomitant]
  4. FOLIC ACID [Concomitant]
  5. KETORALAC [Concomitant]
  6. DOCUSATE [Concomitant]
  7. NALOXONE [Concomitant]
  8. POST ANESTHESIA NARCOTIC REVERSAL MORPHINE [Concomitant]
  9. BUDESONIDE [Concomitant]
  10. MONTELUKAST SODIUM [Concomitant]

REACTIONS (2)
  - ACUTE CHEST SYNDROME [None]
  - UPPER RESPIRATORY TRACT INFECTION [None]
